FAERS Safety Report 13035263 (Version 1)
Quarter: 2016Q4

REPORT INFORMATION
  Report Type: Spontaneous
  Country: US (occurrence: US)
  Receive Date: 20161215
  Receipt Date: 20161215
  Transmission Date: 20170207
  Serious: Yes (Death)
  Sender: FDA-Public Use
  Company Number: None

PATIENT
  Age: 71 Year
  Sex: Male

DRUGS (6)
  1. ESBRIET [Suspect]
     Active Substance: PIRFENIDONE
     Indication: IDIOPATHIC INTERSTITIAL PNEUMONIA
     Route: 048
     Dates: start: 201503, end: 201612
  2. BENICAR [Concomitant]
     Active Substance: OLMESARTAN MEDOXOMIL
  3. GLIPIZIDE. [Concomitant]
     Active Substance: GLIPIZIDE
  4. JANUMET [Concomitant]
     Active Substance: METFORMIN HYDROCHLORIDE\SITAGLIPTIN PHOSPHATE
  5. SPIRIVA [Concomitant]
     Active Substance: TIOTROPIUM BROMIDE MONOHYDRATE
  6. VYTORIN [Concomitant]
     Active Substance: EZETIMIBE\SIMVASTATIN

REACTIONS (1)
  - Respiratory failure [None]

NARRATIVE: CASE EVENT DATE: 201612
